FAERS Safety Report 16964585 (Version 1)
Quarter: 2019Q4

REPORT INFORMATION
  Report Type: Spontaneous
  Country: CA (occurrence: CA)
  Receive Date: 20191028
  Receipt Date: 20191028
  Transmission Date: 20200122
  Serious: Yes (Other)
  Sender: FDA-Public Use
  Company Number: CA-TEVA-2019-CA-1126958

PATIENT
  Age: 40 Year
  Sex: Female

DRUGS (14)
  1. PALAFER [Concomitant]
     Active Substance: FERROUS FUMARATE
     Dosage: 2 DOSAGE FORMS DAILY;
  2. TEVA-LENOLTEC NO. 3 [Concomitant]
     Dosage: 6 DOSAGE FORMS DAILY;
  3. MEDROXYPROGESTERONE ACETATE. [Suspect]
     Active Substance: MEDROXYPROGESTERONE ACETATE
     Route: 065
  4. APO-MELOXICAM [Concomitant]
     Active Substance: MELOXICAM
  5. MEDROXYPROGESTERONE ACETATE. [Suspect]
     Active Substance: MEDROXYPROGESTERONE ACETATE
     Indication: PRODUCT USED FOR UNKNOWN INDICATION
     Route: 065
  6. DICLOFENAC POTASSIUM. [Concomitant]
     Active Substance: DICLOFENAC POTASSIUM
     Dosage: 3 DOSAGE FORMS DAILY;
  7. MEDROXYPROGESTERONE ACETATE. [Suspect]
     Active Substance: MEDROXYPROGESTERONE ACETATE
     Route: 065
  8. FLONASE [Concomitant]
     Active Substance: FLUTICASONE PROPIONATE
     Dosage: 4 DOSAGE FORMS DAILY; INTRA-NASAL
  9. IMOVANE [Concomitant]
     Active Substance: ZOPICLONE
  10. NORFLOXACIN [Concomitant]
     Active Substance: NORFLOXACIN
     Dosage: 2 DOSAGE FORMS DAILY;
  11. MEDROXYPROGESTERONE ACETATE. [Suspect]
     Active Substance: MEDROXYPROGESTERONE ACETATE
     Route: 065
  12. APO-MELOXICAM [Concomitant]
     Active Substance: MELOXICAM
     Dosage: 1 DOSAGE FORMS DAILY;
  13. MEDROXYPROGESTERONE ACETATE. [Suspect]
     Active Substance: MEDROXYPROGESTERONE ACETATE
     Route: 065
  14. APO-MELOXICAM [Concomitant]
     Active Substance: MELOXICAM

REACTIONS (1)
  - Osteopenia [Not Recovered/Not Resolved]
